FAERS Safety Report 13485520 (Version 1)
Quarter: 2017Q2

REPORT INFORMATION
  Report Type: Spontaneous
  Country: US (occurrence: US)
  Receive Date: 20170426
  Receipt Date: 20170426
  Transmission Date: 20170830
  Serious: No
  Sender: FDA-Public Use
  Company Number: US-ELI_LILLY_AND_COMPANY-US201608004377

PATIENT
  Sex: Female

DRUGS (2)
  1. CYMBALTA [Suspect]
     Active Substance: DULOXETINE HYDROCHLORIDE
     Indication: ANXIETY
     Dosage: 60 MG, QD
     Route: 065
  2. CYMBALTA [Suspect]
     Active Substance: DULOXETINE HYDROCHLORIDE
     Indication: DEPRESSION
     Dosage: 30 MG, QD
     Route: 065
     Dates: start: 20060208

REACTIONS (9)
  - Emotional poverty [Unknown]
  - Fatigue [Unknown]
  - Hypoaesthesia [Unknown]
  - Drug withdrawal syndrome [Unknown]
  - Confusional state [Unknown]
  - Lethargy [Unknown]
  - Nausea [Unknown]
  - Hyperhidrosis [Unknown]
  - Tinnitus [Unknown]
